FAERS Safety Report 13661336 (Version 2)
Quarter: 2017Q2

REPORT INFORMATION
  Report Type: Spontaneous
  Country: FR (occurrence: FR)
  Receive Date: 20170616
  Receipt Date: 20170619
  Transmission Date: 20170830
  Serious: Yes (Other)
  Sender: FDA-Public Use
  Company Number: FR-BAYER-2017-113535

PATIENT
  Age: 36 Year
  Sex: Female

DRUGS (1)
  1. MIRENA [Suspect]
     Active Substance: LEVONORGESTREL
     Indication: CONTRACEPTION
     Dosage: 20 MCG/24HR, CONT
     Route: 015
     Dates: start: 20051001, end: 20131101

REACTIONS (10)
  - Somatic symptom disorder of pregnancy [Recovered/Resolved]
  - Weight decreased [Recovered/Resolved]
  - Diffuse alopecia [Recovered/Resolved]
  - Adnexa uteri pain [Recovered/Resolved]
  - Muscle twitching [Recovered/Resolved]
  - Muscle spasms [Recovered/Resolved]
  - Loss of libido [Recovered/Resolved]
  - Mood altered [Recovered/Resolved]
  - Inappropriate affect [Recovered/Resolved]
  - Headache [Recovered/Resolved]

NARRATIVE: CASE EVENT DATE: 201306
